FAERS Safety Report 8923541 (Version 1)
Quarter: 2012Q4

REPORT INFORMATION
  Report Type: 
  Country: ES (occurrence: ES)
  Receive Date: 20121123
  Receipt Date: 20121123
  Transmission Date: 20130627
  Serious: Yes (Hospitalization)
  Sender: FDA-Public Use
  Company Number: ES-PFIZER INC-2012291118

PATIENT
  Age: 60 Year
  Sex: Male

DRUGS (4)
  1. TAZOCEL [Suspect]
     Indication: CHOLECYSTITIS
     Dosage: UNK
     Route: 042
     Dates: start: 20111228, end: 20120116
  2. METRONIDAZOLE BENZOATE [Suspect]
     Indication: SKIN CANDIDA
     Dosage: UNK
     Route: 042
     Dates: start: 20120110, end: 20120116
  3. CLOXACILLIN [Suspect]
     Indication: CHOLECYSTITIS
     Dosage: UNK
     Route: 042
     Dates: start: 20120103, end: 20120116
  4. NOLOTIL  /SPA/ [Suspect]
     Indication: ABDOMINAL PAIN
     Dosage: 500 mg, UNK
     Route: 042
     Dates: start: 20120111, end: 20120116

REACTIONS (4)
  - Pyrexia [Recovered/Resolved]
  - Pruritus [Recovered/Resolved]
  - Rash maculo-papular [Recovered/Resolved]
  - Drug reaction with eosinophilia and systemic symptoms [Recovered/Resolved]
